FAERS Safety Report 24033976 (Version 1)
Quarter: 2024Q3

REPORT INFORMATION
  Report Type: Report from Study
  Country: DE (occurrence: DE)
  Receive Date: 20240701
  Receipt Date: 20240701
  Transmission Date: 20241017
  Serious: No
  Sender: ROCHE
  Company Number: DE-ROCHE-3436210

PATIENT
  Age: 1 Year
  Sex: Male
  Weight: 13.6 kg

DRUGS (2)
  1. EVRYSDI [Suspect]
     Active Substance: RISDIPLAM
     Indication: Spinal muscular atrophy
     Dosage: ON 31/MAY/2023, 31/JAN/2024, HE RECEIVED LAST DOSE OF RISDIPLAM
     Route: 048
     Dates: start: 20230203
  2. CHOLECALCIFEROL [Concomitant]
     Active Substance: CHOLECALCIFEROL
     Dates: start: 20230203

REACTIONS (4)
  - Respiratory tract infection [Recovered/Resolved]
  - Gastrointestinal infection [Recovered/Resolved]
  - Conjunctivitis [Unknown]
  - Pyrexia [Recovered/Resolved]

NARRATIVE: CASE EVENT DATE: 20230508
